FAERS Safety Report 7019849-4 (Version None)
Quarter: 2010Q3

REPORT INFORMATION
  Report Type: 
  Country: None (occurrence: None)
  Receive Date: 20100923
  Receipt Date: 20100917
  Transmission Date: 20110219
  Serious: Yes (Hospitalization, Other)
  Sender: FDA-Public Use
  Company Number: 2010SP039702

PATIENT
  Age: 64 Year
  Sex: Female
  Weight: 108.8633 kg

DRUGS (10)
  1. OXYBUTYNIN [Suspect]
     Dosage: 1 DF;TDER
     Route: 062
  2. GABAPENTIN [Concomitant]
  3. NEXIUM [Concomitant]
  4. LANTUS [Concomitant]
  5. REGULAR INSULIN [Concomitant]
  6. DETROL [Concomitant]
  7. TRAZODONE HCL [Concomitant]
  8. XANAX [Concomitant]
  9. RISPERDAL [Concomitant]
  10. ANTIBIOTIC [Concomitant]

REACTIONS (4)
  - CONFUSIONAL STATE [None]
  - HALLUCINATIONS, MIXED [None]
  - INITIAL INSOMNIA [None]
  - URINARY TRACT INFECTION [None]
